FAERS Safety Report 6859606-2 (Version None)
Quarter: 2010Q3

REPORT INFORMATION
  Report Type: 
  Country: None (occurrence: None)
  Receive Date: 20100719
  Receipt Date: 20080729
  Transmission Date: 20110219
  Serious: Yes (Other)
  Sender: FDA-Public Use
  Company Number: US-PFIZER INC-2008020248

PATIENT
  Sex: Female

DRUGS (13)
  1. CHANTIX [Suspect]
     Indication: SMOKING CESSATION THERAPY
     Dates: start: 20070701
  2. ELAVIL [Concomitant]
  3. FLEXERIL [Concomitant]
     Indication: MUSCLE SPASMS
  4. DILANTIN [Concomitant]
  5. ZANTAC [Concomitant]
  6. FOSAMAX [Concomitant]
  7. NEURONTIN [Concomitant]
  8. TRAZODONE HYDROCHLORIDE [Concomitant]
  9. INDAPAMIDE [Concomitant]
  10. ALBUTEROL [Concomitant]
     Indication: WHEEZING
  11. BENADRYL [Concomitant]
     Indication: PRURITUS
  12. COLACE [Concomitant]
  13. LORTAB [Concomitant]
     Indication: PAIN

REACTIONS (5)
  - ABDOMINAL PAIN UPPER [None]
  - ABNORMAL DREAMS [None]
  - MOOD SWINGS [None]
  - NIGHTMARE [None]
  - SUICIDAL IDEATION [None]
